FAERS Safety Report 21555257 (Version 1)
Quarter: 2022Q4

REPORT INFORMATION
  Report Type: Spontaneous
  Country: US (occurrence: US)
  Receive Date: 20221104
  Receipt Date: 20221104
  Transmission Date: 20230112
  Serious: No
  Sender: FDA-Public Use
  Company Number: US-BRISTOL-MYERS SQUIBB COMPANY-2022-131139

PATIENT
  Age: 67 Year
  Sex: Female

DRUGS (8)
  1. ELIQUIS [Suspect]
     Active Substance: APIXABAN
     Indication: Atrial fibrillation
     Dosage: DOSE : UNAVAILABLE;     FREQ : ONE TABLETS/ TWICE DAILY
     Route: 048
     Dates: start: 202208
  2. SYNTHROID [Concomitant]
     Active Substance: LEVOTHYROXINE SODIUM
     Indication: Product used for unknown indication
     Dosage: ONCE A DAY 88 MCG-
     Route: 065
     Dates: start: 2002
  3. HYDRALAZINE [Concomitant]
     Active Substance: HYDRALAZINE HYDROCHLORIDE
     Indication: Product used for unknown indication
     Dosage: 3 TIMES A DAY 25 MG MORNING / 50MG AFTERNOON/ 25MG NIGHT
     Route: 065
  4. Edarbydlor [Concomitant]
     Indication: Product used for unknown indication
     Dosage: 1 TIME A DAY 40/25 MG
     Route: 065
  5. SYMBICORT [Concomitant]
     Active Substance: BUDESONIDE\FORMOTEROL FUMARATE DIHYDRATE
     Indication: Product used for unknown indication
     Dosage: 160/4.5 TWO PUFFS TWICE DAILY (BEGAN 2 YEARS)
     Route: 065
  6. DILTIAZEM [Concomitant]
     Active Substance: DILTIAZEM
     Indication: Product used for unknown indication
     Dosage: 1 TIME IN EVENING 240 MG (BEGAN WHEN HAD AFIB)
     Route: 065
  7. ATORVASTATIN [Concomitant]
     Active Substance: ATORVASTATIN
     Indication: Product used for unknown indication
     Dosage: 10MG ONCE IN PM10 MG ONCE IN PM
     Route: 065
  8. MONTELUKAST [Concomitant]
     Active Substance: MONTELUKAST SODIUM
     Indication: Product used for unknown indication
     Dosage: TAKES IN EVENING 10MG TABLETS
     Route: 065

REACTIONS (1)
  - Arthralgia [Unknown]
